FAERS Safety Report 5323071-7 (Version None)
Quarter: 2007Q3

REPORT INFORMATION
  Report Type: 
  Country: None (occurrence: None)
  Receive Date: 20070507
  Receipt Date: 20070424
  Transmission Date: 20080115
  Serious: Yes (Hospitalization, Other)
  Sender: FDA-Public Use
  Company Number: SU-2005-003628

PATIENT
  Sex: Female
  Weight: 113.3993 kg

DRUGS (5)
  1. BENICAR [Suspect]
     Indication: HYPERTENSION
     Dosage: 40 MG (40 MG, 1 IN 1 D), PER ORAL
     Route: 048
     Dates: start: 20040601, end: 20050201
  2. DEMULEN (ETHINYLESTRADIOL, ETYNODIOL DIACETATE) (TABLET) ETHINYLESTRAD [Concomitant]
  3. ALDACTAZIDE (SPIRONOLACTONE, HYDROCHLOROTHIAZIDE) (SPIRONOLACTONE, HYD [Concomitant]
  4. GLUCOPHAGE (METFORMIN HYDROCHLORIDE) (METFORMIN HYDROCHLORIDE) [Concomitant]
  5. SYNTHROID (LEVOTHYROXINE SODIUM) (LEVOTHYROXINE SODIUM) [Concomitant]

REACTIONS (4)
  - DRUG EXPOSURE DURING PREGNANCY [None]
  - PREGNANCY ON ORAL CONTRACEPTIVE [None]
  - PREMATURE LABOUR [None]
  - TREATMENT NONCOMPLIANCE [None]
